FAERS Safety Report 18336876 (Version 1)
Quarter: 2020Q4

REPORT INFORMATION
  Report Type: Other
  Country: US (occurrence: US)
  Receive Date: 20201001
  Receipt Date: 20201001
  Transmission Date: 20210113
  Serious: Yes (Hospitalization)
  Sender: FDA-Public Use
  Company Number: US-ROCHE-2683479

PATIENT

DRUGS (1)
  1. OBINUTUZUMAB. [Suspect]
     Active Substance: OBINUTUZUMAB
     Indication: GLOMERULONEPHRITIS MEMBRANOUS
     Route: 042

REACTIONS (6)
  - Urinary tract infection [Unknown]
  - Upper respiratory tract infection [Unknown]
  - Wheezing [Recovered/Resolved]
  - Clostridium difficile infection [Unknown]
  - Leukopenia [Unknown]
  - Cytomegalovirus viraemia [Unknown]
